FAERS Safety Report 17776051 (Version 1)
Quarter: 2020Q2

REPORT INFORMATION
  Report Type: Spontaneous
  Country: US (occurrence: US)
  Receive Date: 20200513
  Receipt Date: 20200513
  Transmission Date: 20200714
  Serious: No
  Sender: FDA-Public Use
  Company Number: US-PFIZER INC-2020189283

PATIENT
  Age: 21 Year
  Sex: Female
  Weight: 55.34 kg

DRUGS (1)
  1. PREMARIN [Suspect]
     Active Substance: ESTROGENS, CONJUGATED
     Indication: VULVOVAGINAL INJURY
     Dosage: 0.625 MG, 1X/DAY (NIGHTLY)
     Route: 067

REACTIONS (5)
  - Product use in unapproved indication [Unknown]
  - Urticaria [Recovered/Resolved]
  - Burning sensation [Recovered/Resolved]
  - Off label use [Unknown]
  - Rash [Recovered/Resolved]
